FAERS Safety Report 5069710-X (Version None)
Quarter: 2006Q3

REPORT INFORMATION
  Report Type: 
  Country: None (occurrence: None)
  Receive Date: 20060731
  Receipt Date: 20060707
  Transmission Date: 20061208
  Serious: Yes (Hospitalization)
  Sender: FDA-Public Use
  Company Number: MAG-2006-0000473

PATIENT
  Age: 75 Year
  Sex: Male

DRUGS (4)
  1. MORPHINE SULFATE [Suspect]
     Indication: PAIN
     Dosage: ORAL
     Route: 048
     Dates: start: 20021201
  2. MORPHINE HCL ELIXIR [Suspect]
     Indication: PAIN
     Dosage: ORAL
     Route: 048
     Dates: start: 20021201
  3. OTHER ANALGESICS AND ANTIPYRETICS [Concomitant]
  4. OTHER ANTIIFLAMMATORY AGENTS IN COMB [Concomitant]

REACTIONS (5)
  - CONDITION AGGRAVATED [None]
  - DEPRESSED LEVEL OF CONSCIOUSNESS [None]
  - DRUG TOXICITY [None]
  - PAIN [None]
  - PARADOXICAL DRUG REACTION [None]
